FAERS Safety Report 6904487-1 (Version None)
Quarter: 2010Q3

REPORT INFORMATION
  Report Type: 
  Country: None (occurrence: None)
  Receive Date: 20100804
  Receipt Date: 20090601
  Transmission Date: 20110219
  Serious: No
  Sender: FDA-Public Use
  Company Number: US-PFIZER INC-2009170676

PATIENT
  Sex: Female

DRUGS (1)
  1. LYRICA [Suspect]
     Indication: TRIGEMINAL NEURALGIA
     Dosage: UNK
     Dates: start: 20060101, end: 20070101

REACTIONS (11)
  - AMNESIA [None]
  - ARTHRALGIA [None]
  - CONTUSION [None]
  - COORDINATION ABNORMAL [None]
  - DIARRHOEA [None]
  - DYSKINESIA [None]
  - MYALGIA [None]
  - OEDEMA PERIPHERAL [None]
  - PAIN [None]
  - SWELLING FACE [None]
  - VISUAL IMPAIRMENT [None]
